FAERS Safety Report 18500339 (Version 1)
Quarter: 2020Q4

REPORT INFORMATION
  Report Type: Spontaneous
  Country: US (occurrence: US)
  Receive Date: 20201112
  Receipt Date: 20201112
  Transmission Date: 20210114
  Serious: No
  Sender: FDA-Public Use
  Company Number: None

PATIENT
  Sex: Female

DRUGS (26)
  1. ENBREL [Suspect]
     Active Substance: ETANERCEPT
     Indication: RHEUMATOID ARTHRITIS
     Route: 058
     Dates: start: 20200109
  2. ARMOUR THYRO [Concomitant]
  3. CEPHALEXIN. [Concomitant]
     Active Substance: CEPHALEXIN
  4. OXYBUTYNIN. [Concomitant]
     Active Substance: OXYBUTYNIN CHLORIDE
  5. DOXYCYC MONO [Concomitant]
     Active Substance: DOXYCYCLINE
  6. METHOTREXATE. [Concomitant]
     Active Substance: METHOTREXATE
  7. MIRVASO [Concomitant]
     Active Substance: BRIMONIDINE TARTRATE
  8. AMOXICILLIN. [Concomitant]
     Active Substance: AMOXICILLIN
  9. DEXTROAMPHET SACCHARAT, AMPHET ASPARTATE, DEXTROAMPHET SULFATE AND AMPHET SULFAT [Concomitant]
     Active Substance: AMPHETAMINE ASPARTATE\AMPHETAMINE SULFATE\DEXTROAMPHETAMINE SACCHARATE\DEXTROAMPHETAMINE SULFATE
  10. ASPIRIN EC [Concomitant]
     Active Substance: ASPIRIN
  11. OMEPRAZOLE. [Concomitant]
     Active Substance: OMEPRAZOLE
  12. OXYMORPHONE ER [Concomitant]
     Active Substance: OXYMORPHONE
  13. TRANSDERM- SC [Concomitant]
  14. VALACYCLOVIR [Concomitant]
     Active Substance: VALACYCLOVIR HYDROCHLORIDE
  15. AZELAIC ACID. [Concomitant]
     Active Substance: AZELAIC ACID
  16. DICLOFENAC GEL [Concomitant]
     Active Substance: DICLOFENAC
  17. NYSTATIN. [Concomitant]
     Active Substance: NYSTATIN
  18. PROGESTERONE. [Concomitant]
     Active Substance: PROGESTERONE
  19. ZOLPIDEM [Concomitant]
     Active Substance: ZOLPIDEM TARTRATE
  20. ALBUTEROL AER [Concomitant]
     Active Substance: ALBUTEROL
  21. LISINOPRIL. [Concomitant]
     Active Substance: LISINOPRIL
  22. MUPIRICIN [Concomitant]
  23. SUMATRIPTAN. [Concomitant]
     Active Substance: SUMATRIPTAN
  24. CYANOCOBALAM [Concomitant]
     Active Substance: CYANOCOBALAMIN
  25. HYDROXYZ PAM [Concomitant]
     Active Substance: HYDROXYZINE PAMOATE
  26. OXYCODONE AND ACETAMINOPHEN [Concomitant]
     Active Substance: ACETAMINOPHEN\OXYCODONE HYDROCHLORIDE

REACTIONS (2)
  - Pain [None]
  - Condition aggravated [None]
